FAERS Safety Report 14258464 (Version 1)
Quarter: 2017Q4

REPORT INFORMATION
  Report Type: Spontaneous
  Country: US (occurrence: US)
  Receive Date: 20171207
  Receipt Date: 20171207
  Transmission Date: 20180321
  Serious: No
  Sender: FDA-Public Use
  Company Number: US-PFIZER INC-2017520383

PATIENT
  Age: 64 Year
  Sex: Female

DRUGS (8)
  1. CALCIUM [Concomitant]
     Active Substance: CALCIUM
     Indication: BONE DISORDER
     Dosage: 1 DF, DAILY
  2. FERRATE [Concomitant]
     Indication: BLOOD IRON DECREASED
     Dosage: 240-27FE MG TABLETS
  3. EFFER-K [Concomitant]
     Indication: BLOOD POTASSIUM DECREASED
     Dosage: 10 MEQ, UNK
  4. WARFARIN [Concomitant]
     Active Substance: WARFARIN
     Indication: BLOOD DISORDER
     Dosage: 7.5 MG, UNK
  5. ZINC. [Concomitant]
     Active Substance: ZINC
     Dosage: 220 MG, UNK
  6. JANUVIA [Concomitant]
     Active Substance: SITAGLIPTIN PHOSPHATE
     Indication: BLOOD GLUCOSE FLUCTUATION
     Dosage: 100 MG, 1X/DAY
  7. ATROPINE SULFATE/DIPHENOXYLATE HYDROCHLORIDE [Suspect]
     Active Substance: ATROPINE SULFATE\DIPHENOXYLATE HYDROCHLORIDE
     Indication: DIARRHOEA
     Dosage: 1 DF, AS NEEDED, 2.5-0025MG, TABLETS, BY MOUTH, ONE TABLET EVERY 6 HOURS AS NEEDED
     Dates: start: 201605, end: 201606
  8. KEYTRUDA [Concomitant]
     Active Substance: PEMBROLIZUMAB
     Indication: COLON CANCER
     Dosage: DOES NOT KNOW DOSE RECEIVES PRODUCT AT CANCER CENTER EVERY 3 WEEKS

REACTIONS (2)
  - Drug ineffective [Unknown]
  - Product use issue [Unknown]

NARRATIVE: CASE EVENT DATE: 201605
